FAERS Safety Report 11242108 (Version 3)
Quarter: 2015Q3

REPORT INFORMATION
  Report Type: Spontaneous
  Country: JP (occurrence: JP)
  Receive Date: 20150706
  Receipt Date: 20150807
  Transmission Date: 20151125
  Serious: Yes (Life-Threatening, Hospitalization)
  Sender: FDA-Public Use
  Company Number: JP-CELGENE-JPN-2015070752

PATIENT
  Age: 50 Year
  Sex: Male
  Weight: 65 kg

DRUGS (2)
  1. ABRAXANE [Suspect]
     Active Substance: PACLITAXEL
     Indication: PANCREATIC CARCINOMA
     Dosage: 210 MILLIGRAM
     Route: 041
     Dates: start: 20150615, end: 20150622
  2. GEMZAR [Suspect]
     Active Substance: GEMCITABINE HYDROCHLORIDE
     Indication: PANCREATIC CARCINOMA
     Route: 065
     Dates: start: 20150615, end: 20150622

REACTIONS (5)
  - Pneumonia aspiration [Recovering/Resolving]
  - Septic shock [Unknown]
  - Disseminated intravascular coagulation [Unknown]
  - Pancytopenia [Recovering/Resolving]
  - Cholangitis [Unknown]

NARRATIVE: CASE EVENT DATE: 20150626
